FAERS Safety Report 11330760 (Version 1)
Quarter: 2015Q3

REPORT INFORMATION
  Report Type: Spontaneous
  Country: US (occurrence: None)
  Receive Date: 20150731
  Receipt Date: 20150731
  Transmission Date: 20151125
  Serious: No
  Sender: FDA-Public Use
  Company Number: None

PATIENT
  Age: 56 Year
  Sex: Male

DRUGS (6)
  1. BENADRYL [Concomitant]
     Active Substance: DIPHENHYDRAMINE HYDROCHLORIDE
  2. TEMAZEPAM. [Concomitant]
     Active Substance: TEMAZEPAM
  3. VIKERA [Concomitant]
  4. GENERLAC [Concomitant]
     Active Substance: LACTULOSE
  5. ATENOLOL. [Concomitant]
     Active Substance: ATENOLOL
  6. RIBAVIRIN 200MG ZYDUS [Suspect]
     Active Substance: RIBAVIRIN
     Indication: HEPATITIS C
     Dosage: 600MG  QAM  PO
     Route: 048
     Dates: start: 20150612

REACTIONS (4)
  - Insomnia [None]
  - Ocular discomfort [None]
  - Photophobia [None]
  - Dyspepsia [None]
